FAERS Safety Report 9391535 (Version 3)
Quarter: 2013Q3

REPORT INFORMATION
  Report Type: Spontaneous
  Country: DO (occurrence: DO)
  Receive Date: 20130709
  Receipt Date: 20130910
  Transmission Date: 20140515
  Serious: Yes (Death, Hospitalization)
  Sender: FDA-Public Use
  Company Number: DO-GENZYME-POMP-1003096

PATIENT
  Age: 8 Month
  Sex: Male
  Weight: 6.5 kg

DRUGS (4)
  1. MYOZYME [Suspect]
     Indication: GLYCOGEN STORAGE DISEASE TYPE II
     Dosage: 20 MG/KG, UNK
     Route: 042
     Dates: start: 20130527, end: 20130710
  2. METHOTREXATE [Suspect]
     Indication: IMMUNOMODULATORY THERAPY
     Dosage: 0.4 MG/KG, UNK
     Route: 065
     Dates: start: 20130527, end: 20130618
  3. IMMUNOGLOBULIN [Suspect]
     Indication: IMMUNOMODULATORY THERAPY
     Dosage: 400-500 MG/KG, UNK
     Route: 042
     Dates: start: 20130527
  4. RITUXIMAB [Suspect]
     Indication: IMMUNOMODULATORY THERAPY
     Dosage: 375 MG/M2, UNK
     Route: 065
     Dates: start: 20130527, end: 20130618

REACTIONS (3)
  - Respiratory failure [Fatal]
  - Atelectasis [Recovered/Resolved]
  - Pneumonia [Recovered/Resolved]
